FAERS Safety Report 21174816 (Version 5)
Quarter: 2025Q4

REPORT INFORMATION
  Report Type: Report from Study
  Country: HN (occurrence: HN)
  Receive Date: 20220805
  Receipt Date: 20251117
  Transmission Date: 20260118
  Serious: Yes (Hospitalization, Other)
  Sender: NOVARTIS
  Company Number: HN-NOVARTISPH-NVSC2022HN176667

PATIENT
  Sex: Male

DRUGS (5)
  1. EXFORGE [Suspect]
     Active Substance: AMLODIPINE BESYLATE\VALSARTAN
     Indication: Hypertension
     Dosage: 1 DOSAGE FORM, QD (STARTED APPROXIMATELY 5 YEARS AGO)
     Route: 048
  2. EXFORGE [Suspect]
     Active Substance: AMLODIPINE BESYLATE\VALSARTAN
     Dosage: 320 MG
     Route: 048
  3. WARFARIN [Concomitant]
     Active Substance: WARFARIN
     Indication: Anticoagulant therapy
     Dosage: 0.5 DOSAGE FORM, QD (STARTED APPROXIMATELY 8 YEARS AGO)
     Route: 048
  4. NEBIVOLOL [Concomitant]
     Active Substance: NEBIVOLOL
     Indication: Hypertension
     Dosage: 1 DOSAGE FORM, QD (5MG)
     Route: 048
  5. NEBIVOLOL [Concomitant]
     Active Substance: NEBIVOLOL
     Indication: Anticoagulant therapy

REACTIONS (13)
  - Cerebrovascular accident [Recovered/Resolved]
  - Memory impairment [Unknown]
  - Gait inability [Unknown]
  - Pain in extremity [Unknown]
  - Cerebrovascular accident [Recovered/Resolved]
  - Deafness [Unknown]
  - COVID-19 [Recovered/Resolved]
  - Oropharyngeal pain [Recovered/Resolved]
  - Headache [Recovered/Resolved]
  - Glucose tolerance impaired [Not Recovered/Not Resolved]
  - Prostatitis [Recovered/Resolved]
  - Gait disturbance [Recovered/Resolved]
  - Hypoacusis [Unknown]

NARRATIVE: CASE EVENT DATE: 20200101
